FAERS Safety Report 6424668-3 (Version None)
Quarter: 2009Q4

REPORT INFORMATION
  Report Type: 
  Country: None (occurrence: None)
  Receive Date: 20091103
  Receipt Date: 20091023
  Transmission Date: 20100525
  Serious: Yes (Life-Threatening, Hospitalization, Other)
  Sender: FDA-Public Use
  Company Number: CA-NOVOPROD-292470

PATIENT
  Age: 52 Year
  Sex: Male
  Weight: 69 kg

DRUGS (9)
  1. INSULIN DETEMIR 2.4 MOL/L [Suspect]
     Indication: TYPE 2 DIABETES MELLITUS
     Dosage: 36 IU, QD
     Dates: start: 20090304, end: 20090919
  2. ALTACE [Concomitant]
     Dosage: 10 MG, QD
     Route: 048
     Dates: start: 20001215
  3. PLAVIX [Concomitant]
     Dosage: 70 MG, UNK
     Route: 048
     Dates: start: 20090508
  4. ASPIRIN [Concomitant]
     Dosage: 81 MG, UNK
     Route: 048
     Dates: start: 20090508
  5. ATORVASTATIN [Concomitant]
     Dosage: 80 MG, UNK
     Route: 048
     Dates: start: 20001215
  6. METFORMIN HCL [Concomitant]
     Dosage: 2 MG, QD
     Route: 048
     Dates: start: 20020506
  7. ATENOLOL [Concomitant]
     Dosage: 50 MG, UNK
     Route: 048
     Dates: start: 20090902
  8. NITROGLYCERIN [Concomitant]
     Dosage: 4 MG, QD
     Route: 062
     Dates: start: 20090902
  9. DILTIAZEM CD [Concomitant]
     Dosage: 240 MG, UNK
     Route: 048
     Dates: start: 20090902

REACTIONS (5)
  - ACUTE MYOCARDIAL INFARCTION [None]
  - CARDIAC ARREST [None]
  - CARDIOGENIC SHOCK [None]
  - GASTROINTESTINAL HAEMORRHAGE [None]
  - SEPSIS [None]
